FAERS Safety Report 7349051-8 (Version None)
Quarter: 2011Q1

REPORT INFORMATION
  Report Type: 
  Country: None (occurrence: None)
  Receive Date: 20110314
  Receipt Date: 20110303
  Transmission Date: 20110831
  Serious: Yes (Hospitalization)
  Sender: FDA-Public Use
  Company Number: US-RB-022531-11

PATIENT
  Age: 66 Year
  Sex: Male

DRUGS (2)
  1. MUCINEX DM [Suspect]
     Dosage: DOSING STARTED 01-MAR-2011
     Route: 048
  2. MUCINEX DM [Suspect]
     Indication: MALAISE
     Dosage: TAKEN ON AND OFF FOR 8 WEEKS
     Route: 048

REACTIONS (5)
  - OXYGEN SATURATION DECREASED [None]
  - OVERDOSE [None]
  - INCORRECT DRUG ADMINISTRATION DURATION [None]
  - DYSPHAGIA [None]
  - BRONCHITIS [None]
